FAERS Safety Report 8002477-1 (Version None)
Quarter: 2011Q4

REPORT INFORMATION
  Report Type: 
  Country: None (occurrence: None)
  Receive Date: 20111222
  Receipt Date: 20111214
  Transmission Date: 20120403
  Serious: Yes (Other)
  Sender: FDA-Public Use
  Company Number: JP-JNJFOC-20110203355

PATIENT
  Age: 38 Year
  Sex: Female
  Weight: 65 kg

DRUGS (9)
  1. REMICADE [Suspect]
     Dosage: 4TH DOSE
     Route: 042
     Dates: start: 20100712
  2. REMICADE [Suspect]
     Route: 042
     Dates: start: 20101101
  3. REMICADE [Suspect]
     Dosage: 5TH INFUSION
     Route: 042
     Dates: start: 20100906
  4. CYCLOSPORINE [Concomitant]
     Indication: PSORIASIS
     Route: 048
  5. BONALFA [Concomitant]
     Indication: PSORIASIS
     Dosage: STARTED PRIOR TO INFLIXIMAB
     Route: 003
     Dates: end: 20100510
  6. REMICADE [Suspect]
     Route: 042
     Dates: start: 20100514
  7. REMICADE [Suspect]
     Indication: PSORIASIS
     Route: 042
     Dates: start: 20100405
  8. REMICADE [Suspect]
     Route: 042
     Dates: start: 20100419
  9. MYSER [Concomitant]
     Indication: PSORIASIS
     Dosage: STARTED BEFORE INFLIXIMAB THERAPY
     Route: 003
     Dates: end: 20100510

REACTIONS (1)
  - PLEURAL EFFUSION [None]
